FAERS Safety Report 7611096-8 (Version None)
Quarter: 2011Q3

REPORT INFORMATION
  Report Type: 
  Country: None (occurrence: None)
  Receive Date: 20110707
  Receipt Date: 20110623
  Transmission Date: 20111222
  Serious: Yes (Death)
  Sender: FDA-Public Use
  Company Number: 11-380

PATIENT
  Age: 35 Year

DRUGS (5)
  1. METHADONE HCL [Suspect]
     Indication: PRODUCT USED FOR UNKNOWN INDICATION
  2. METHAMPHETAMINE [Suspect]
     Indication: PRODUCT USED FOR UNKNOWN INDICATION
  3. IBUPROFEN [Suspect]
     Indication: PRODUCT USED FOR UNKNOWN INDICATION
  4. ACETAMINOPHEN [Suspect]
     Indication: PRODUCT USED FOR UNKNOWN INDICATION
  5. CODEINE SULFATE [Suspect]
     Indication: PRODUCT USED FOR UNKNOWN INDICATION

REACTIONS (3)
  - ACCIDENTAL OVERDOSE [None]
  - TOXICITY TO VARIOUS AGENTS [None]
  - ARRHYTHMIA [None]
